FAERS Safety Report 5801924-0 (Version None)
Quarter: 2008Q3

REPORT INFORMATION
  Report Type: 
  Country: None (occurrence: None)
  Receive Date: 20080707
  Receipt Date: 20080623
  Transmission Date: 20090109
  Serious: Yes (Other)
  Sender: FDA-Public Use
  Company Number: AR-ASTRAZENECA-2008UW13214

PATIENT
  Age: 77 Year
  Sex: Female

DRUGS (10)
  1. OMEPRAZOLE [Suspect]
     Route: 048
  2. ENALAPRIL MALEATE [Concomitant]
     Route: 048
  3. ATENOLOL [Concomitant]
     Route: 048
  4. ASPIRIN [Concomitant]
     Route: 048
  5. FLUOXETINE [Concomitant]
     Indication: DEPRESSION
     Route: 048
  6. BROMAZEPAM [Concomitant]
     Indication: DEPRESSION
     Route: 048
  7. PROPOXYPHENE [Concomitant]
  8. GLUCOSAN [Concomitant]
  9. MELOXICAM [Concomitant]
     Route: 048
  10. BETAMETHASONE [Concomitant]

REACTIONS (6)
  - GLASGOW COMA SCALE [None]
  - HYPERHIDROSIS [None]
  - HYPERREFLEXIA [None]
  - LETHARGY [None]
  - MYOCLONUS [None]
  - SEROTONIN SYNDROME [None]
